FAERS Safety Report 23038697 (Version 11)
Quarter: 2024Q4

REPORT INFORMATION
  Report Type: Spontaneous
  Country: US (occurrence: US)
  Receive Date: 20231006
  Receipt Date: 20241003
  Transmission Date: 20250114
  Serious: No
  Sender: PFIZER
  Company Number: US-PFIZER INC-PV202300157067

PATIENT
  Age: 12 Year
  Sex: Female
  Weight: 37.19 kg

DRUGS (5)
  1. GENOTROPIN [Suspect]
     Active Substance: SOMATROPIN
     Indication: Short stature
     Dosage: 1.6 MG ONCE DAILY 6 DAYS A WEEK
  2. GENOTROPIN [Suspect]
     Active Substance: SOMATROPIN
     Dosage: 1.8 MG 6 TIMES A WEEK, ADMINISTERED ARMS, GLUTEUS, OR UPPER THIGH
     Dates: start: 2018
  3. GENOTROPIN [Suspect]
     Active Substance: SOMATROPIN
     Dosage: 1.6 MG, 1X/DAY [6 MG/DAY 3 DAYS/WK]
  4. VITAMIN D NOS [Concomitant]
     Active Substance: CHOLECALCIFEROL\ERGOCALCIFEROL
     Indication: Growth disorder
     Dosage: 1 DROP, DAILY (IN THE SAME LIQUID AS THE CALCIUM WWITH ORANGE JUICE)
     Route: 048
  5. CALCIUM [Concomitant]
     Active Substance: CALCIUM
     Indication: Growth disorder
     Dosage: HALF TEASPOON, DAILY, BY MOUTH. IT^S A POWDER DISSOLVE IN LIQUID, PLACED IN ORANGE JUICE
     Route: 048

REACTIONS (7)
  - Accidental exposure to product [Unknown]
  - Exposure via skin contact [Unknown]
  - Device use error [Unknown]
  - Device leakage [Unknown]
  - Device malfunction [Unknown]
  - Product administered at inappropriate site [Unknown]
  - Product prescribing error [Unknown]
